FAERS Safety Report 8830534 (Version 1)
Quarter: 2012Q4

REPORT INFORMATION
  Report Type: 
  Country: US (occurrence: US)
  Receive Date: 20121009
  Receipt Date: 20121009
  Transmission Date: 20130627
  Serious: Yes (Hospitalization)
  Sender: FDA-Public Use
  Company Number: US-BRISTOL-MYERS SQUIBB COMPANY-16931925

PATIENT

DRUGS (2)
  1. NULOJIX [Suspect]
     Indication: RENAL TRANSPLANT
     Dosage: Started 8 months ago
  2. CELLCEPT [Suspect]

REACTIONS (1)
  - Varicella [Unknown]
